FAERS Safety Report 11936419 (Version 2)
Quarter: 2016Q1

REPORT INFORMATION
  Report Type: Spontaneous
  Country: CH (occurrence: CH)
  Receive Date: 20160121
  Receipt Date: 20160224
  Transmission Date: 20160526
  Serious: Yes (Death, Hospitalization)
  Sender: FDA-Public Use
  Company Number: CH-TEVA-626639ISR

PATIENT
  Age: 87 Year
  Sex: Female

DRUGS (8)
  1. ROSUVASTATIN [Suspect]
     Active Substance: ROSUVASTATIN
     Indication: CARDIAC DISORDER
     Dosage: 10MG
     Route: 065
  2. NICORANDIL [Suspect]
     Active Substance: NICORANDIL
     Indication: CARDIAC DISORDER
     Dosage: 2X20MG
     Route: 065
  3. BISOPROLOL [Suspect]
     Active Substance: BISOPROLOL
     Indication: CARDIAC DISORDER
     Dosage: 2.5MG
     Route: 065
  4. TORASEMIDE [Suspect]
     Active Substance: TORSEMIDE
     Indication: CARDIAC DISORDER
     Dosage: 50MG
     Route: 065
  5. FLUCONAZOLE. [Suspect]
     Active Substance: FLUCONAZOLE
     Route: 065
  6. PREDNISONE. [Suspect]
     Active Substance: PREDNISONE
     Indication: POLYMYALGIA RHEUMATICA
     Route: 065
  7. MARCOUMAR [Concomitant]
     Active Substance: PHENPROCOUMON
     Route: 065
  8. AMIODARONE [Suspect]
     Active Substance: AMIODARONE
     Indication: CARDIAC DISORDER
     Dosage: 200MG
     Route: 065

REACTIONS (13)
  - Nasal septum perforation [Unknown]
  - Diverticulitis [Unknown]
  - Delirium [Unknown]
  - Mouth ulceration [Unknown]
  - International normalised ratio abnormal [Unknown]
  - Depression [Unknown]
  - Renal tubular necrosis [Unknown]
  - Cholangitis [Unknown]
  - Haematoma [Unknown]
  - Long QT syndrome [Unknown]
  - Condition aggravated [Fatal]
  - Mouth ulceration [Recovered/Resolved]
  - Chronic kidney disease [Unknown]
